FAERS Safety Report 20935963 (Version 1)
Quarter: 2022Q2

REPORT INFORMATION
  Report Type: Spontaneous
  Country: US (occurrence: US)
  Receive Date: 20220609
  Receipt Date: 20220609
  Transmission Date: 20220721
  Serious: No
  Sender: FDA-Public Use
  Company Number: US-BRISTOL-MYERS SQUIBB COMPANY-2022-041320

PATIENT
  Age: 71 Year
  Weight: 110.36 kg

DRUGS (1)
  1. REVLIMID [Suspect]
     Active Substance: LENALIDOMIDE
     Indication: Plasma cell myeloma
     Dosage: FREQUENCY: D1 -14 Q21 DAYS
     Route: 048
     Dates: start: 20220509

REACTIONS (2)
  - Abdominal discomfort [Recovered/Resolved]
  - Hot flush [Recovered/Resolved]
